FAERS Safety Report 9551768 (Version 2)
Quarter: 2013Q4

REPORT INFORMATION
  Report Type: Spontaneous
  Country: US (occurrence: US)
  Receive Date: 20130925
  Receipt Date: 20131008
  Transmission Date: 20140711
  Serious: Yes (Hospitalization, Other)
  Sender: FDA-Public Use
  Company Number: US-JNJFOC-20130909948

PATIENT
  Age: 18 Year
  Sex: Male
  Weight: 58.97 kg

DRUGS (2)
  1. REMICADE [Suspect]
     Indication: COLITIS ULCERATIVE
     Route: 042
     Dates: start: 201209, end: 201212
  2. MERCAPTOPURINE [Concomitant]
     Route: 065

REACTIONS (11)
  - Weight increased [Unknown]
  - Drug ineffective [Recovered/Resolved]
  - Colitis ulcerative [Recovered/Resolved]
  - Haemoglobin decreased [Recovered/Resolved]
  - Escherichia infection [Recovered/Resolved]
  - Staphylococcal infection [Recovered/Resolved]
  - Abscess [Unknown]
  - Fluid retention [Unknown]
  - Lumbar vertebral fracture [Not Recovered/Not Resolved]
  - Haemorrhagic disorder [Recovered/Resolved]
  - Adverse event [Unknown]
